FAERS Safety Report 8974242 (Version 1)
Quarter: 2012Q4

REPORT INFORMATION
  Report Type: Spontaneous
  Country: ES (occurrence: None)
  Receive Date: 20121214
  Receipt Date: 20121214
  Transmission Date: 20130627
  Serious: Yes (Life-Threatening)
  Sender: FDA-Public Use
  Company Number: 1515335

PATIENT
  Age: 53 Year
  Sex: Male
  Weight: 23.13 kg

DRUGS (1)
  1. PACLITAXEL [Suspect]
     Dosage: Cyclical
     Route: 042
     Dates: start: 20121018, end: 20121018

REACTIONS (1)
  - Cardio-respiratory arrest [None]
